FAERS Safety Report 6611111-4 (Version None)
Quarter: 2010Q1

REPORT INFORMATION
  Report Type: 
  Country: None (occurrence: None)
  Receive Date: 20100303
  Receipt Date: 20100222
  Transmission Date: 20100710
  Serious: Yes (Hospitalization)
  Sender: FDA-Public Use
  Company Number: US-BIOGENIDEC-2009BI032983

PATIENT
  Age: 46 Year
  Sex: Female

DRUGS (1)
  1. AVONEX [Suspect]
     Indication: MULTIPLE SCLEROSIS
     Route: 030
     Dates: start: 20090227

REACTIONS (12)
  - ABDOMINAL PAIN UPPER [None]
  - BALANCE DISORDER [None]
  - CROHN'S DISEASE [None]
  - DIZZINESS [None]
  - HEADACHE [None]
  - HYPERTENSION [None]
  - HYPOAESTHESIA [None]
  - MOBILITY DECREASED [None]
  - NAUSEA [None]
  - PANCREATITIS [None]
  - PARAESTHESIA [None]
  - TREMOR [None]
